FAERS Safety Report 15145393 (Version 2)
Quarter: 2018Q3

REPORT INFORMATION
  Report Type: Other
  Country: US (occurrence: US)
  Receive Date: 20180713
  Receipt Date: 20180831
  Transmission Date: 20181010
  Serious: No
  Sender: FDA-Public Use
  Company Number: US-INTERCEPT-PMOCA2018000561

PATIENT

DRUGS (4)
  1. OCALIVA [Suspect]
     Active Substance: OBETICHOLIC ACID
     Dosage: 5 MG, QD
     Route: 048
     Dates: start: 20171204, end: 20180404
  2. URSO [Concomitant]
     Active Substance: URSODIOL
  3. OCALIVA [Suspect]
     Active Substance: OBETICHOLIC ACID
     Indication: PRIMARY BILIARY CHOLANGITIS
     Dosage: 5 MG, QD
     Route: 048
     Dates: start: 201705
  4. OCALIVA [Suspect]
     Active Substance: OBETICHOLIC ACID
     Dosage: 5 MG, QOD
     Route: 048
     Dates: start: 20170918

REACTIONS (9)
  - Confusional state [Recovered/Resolved]
  - Alopecia [Recovered/Resolved]
  - Hepatic enzyme abnormal [Recovered/Resolved]
  - Temperature difference of extremities [Recovered/Resolved]
  - Fatigue [Recovered/Resolved]
  - Skin discolouration [Recovered/Resolved]
  - Ocular icterus [Recovered/Resolved]
  - Pruritus [Recovered/Resolved]
  - Amnesia [Not Recovered/Not Resolved]

NARRATIVE: CASE EVENT DATE: 201804
